FAERS Safety Report 11224341 (Version 1)
Quarter: 2015Q2

REPORT INFORMATION
  Report Type: Report from Study
  Country: PL (occurrence: PL)
  Receive Date: 20150629
  Receipt Date: 20150629
  Transmission Date: 20150821
  Serious: Yes (Other)
  Sender: FDA-Public Use
  Company Number: PL-AMGEN-POLCT2015063532

PATIENT
  Age: 66 Year
  Sex: Female

DRUGS (68)
  1. METHOTREXATE [Concomitant]
     Active Substance: METHOTREXATE
     Dosage: 15 MG, 1 IN 1 WK
     Route: 048
     Dates: start: 201203, end: 20120917
  2. METHYLPREDNISOLON                  /00049601/ [Concomitant]
     Active Substance: METHYLPREDNISOLONE
     Dosage: 6 MG, 1X/DAY
     Route: 048
     Dates: start: 20141216
  3. BISOPROLOL [Concomitant]
     Active Substance: BISOPROLOL
     Dosage: 2.5 MG, 1X/DAY
     Route: 048
     Dates: start: 20120917, end: 20130113
  4. CALCII CARBONAS [Concomitant]
     Indication: OSTEOPOROSIS POSTMENOPAUSAL
     Dosage: 1200 MG, 1X/DAY
     Route: 048
     Dates: start: 201105, end: 20120917
  5. CLINDAMYCIN [Concomitant]
     Active Substance: CLINDAMYCIN\CLINDAMYCIN PHOSPHATE
     Indication: SINUSITIS
     Dosage: 300 MG, 3X/DAY
     Route: 048
     Dates: start: 20120525, end: 20120531
  6. PROPAFENON                         /00546301/ [Concomitant]
     Dosage: 75 MG, 2X/DAY
     Route: 048
     Dates: start: 20121105
  7. PARACETAMOL [Concomitant]
     Active Substance: ACETAMINOPHEN
     Indication: RHEUMATOID ARTHRITIS
     Dosage: 500 MG, 1 IN 1 AS REQUIRED
     Route: 048
     Dates: start: 20120917
  8. METHYLPREDNISOLON                  /00049601/ [Concomitant]
     Active Substance: METHYLPREDNISOLONE
     Dosage: 250 MG, 1X/DAY
     Route: 042
     Dates: start: 20121025, end: 20121027
  9. METHYLPREDNISOLON                  /00049601/ [Concomitant]
     Active Substance: METHYLPREDNISOLONE
     Dosage: 6 MG, 1X/DAY
     Route: 048
     Dates: start: 20130207, end: 20130708
  10. EZETIMIBE. [Concomitant]
     Active Substance: EZETIMIBE
     Indication: HYPERLIPIDAEMIA
     Dosage: 10 MG, 1X/DAY
     Route: 048
     Dates: start: 2010, end: 20121127
  11. ACETYLSALICYLIC ACID [Concomitant]
     Active Substance: ASPIRIN
     Indication: CORONARY ARTERY DISEASE
     Dosage: 75 MG, 1 IN 1 WK)
     Route: 048
     Dates: start: 2006, end: 20130113
  12. CALCII CARBONAS [Concomitant]
     Dosage: 1000 MG, 1X/DAY
     Route: 048
     Dates: start: 20121105, end: 20130113
  13. CALCII CARBONAS [Concomitant]
     Dosage: 1000 MG, 1X/DAY
     Route: 048
     Dates: start: 20141216
  14. PROPAFENON                         /00546301/ [Concomitant]
     Indication: ATRIAL FIBRILLATION
     Dosage: 75 MG, 3X/DAY
     Route: 048
     Dates: start: 20120710, end: 20120917
  15. POTASSIUM CHLORIDE. [Concomitant]
     Active Substance: POTASSIUM CHLORIDE
     Dosage: 391 MG, 1X/DAY
     Route: 048
     Dates: start: 20130114
  16. FUROSEMID                          /00032601/ [Concomitant]
     Active Substance: FUROSEMIDE
     Dosage: 40 MG, 2X/DAY
     Route: 048
     Dates: start: 20121024, end: 20130113
  17. FUROSEMID                          /00032601/ [Concomitant]
     Active Substance: FUROSEMIDE
     Dosage: 80 MG, 1X/DAY
     Route: 048
     Dates: start: 20130114, end: 20130917
  18. LACIDIPINE [Concomitant]
     Active Substance: LACIDIPINE
     Indication: HYPERTENSION
     Dosage: 4 MG, 1X/DAY
     Route: 048
     Dates: start: 20120917, end: 20130113
  19. DICLOFENAC [Concomitant]
     Active Substance: DICLOFENAC
     Indication: RHEUMATOID ARTHRITIS
     Dosage: 50 MG, AS NEEDED
     Route: 048
     Dates: end: 20120917
  20. ALLOPURINOL. [Concomitant]
     Active Substance: ALLOPURINOL
     Dosage: 200 MG, 1X/DAY
     Route: 048
     Dates: start: 20140918, end: 20141218
  21. ALLOPURINOL. [Concomitant]
     Active Substance: ALLOPURINOL
     Dosage: 200 MG, 1X/DAY
     Route: 048
     Dates: start: 20140918, end: 20141218
  22. DENOSUMAB [Concomitant]
     Active Substance: DENOSUMAB
     Indication: OSTEOPOROSIS
     Dosage: 60 MG, UNK
     Route: 058
     Dates: start: 20140716
  23. ETANERCEPT [Suspect]
     Active Substance: ETANERCEPT
     Indication: RHEUMATOID ARTHRITIS
     Dosage: 50 MG, UNK, 1 IN 1 WK, LAST DOSE PRIOR TO SAE ON 14/MAY/2015
     Route: 058
     Dates: start: 20150514
  24. METHYLPREDNISOLON                  /00049601/ [Concomitant]
     Active Substance: METHYLPREDNISOLONE
     Dosage: 16 MG, 1X/DAY
     Route: 048
     Dates: start: 20121028, end: 20121104
  25. METHYLPREDNISOLON                  /00049601/ [Concomitant]
     Active Substance: METHYLPREDNISOLONE
     Dosage: 8 MG, 1X/DAY
     Route: 048
     Dates: start: 20121105, end: 20130206
  26. FOLIC ACID. [Concomitant]
     Active Substance: FOLIC ACID
     Dosage: 0.133 MUG, 1X/DAY
     Route: 048
     Dates: start: 20121105, end: 20121120
  27. BISOPROLOL [Concomitant]
     Active Substance: BISOPROLOL
     Indication: CORONARY ARTERY DISEASE
     Dosage: 5 MG, 1X/DAY
     Route: 048
     Dates: start: 20120710, end: 20120917
  28. PANTOPRAZOLE SODIUM. [Concomitant]
     Active Substance: PANTOPRAZOLE SODIUM
     Dosage: 40 MG, 1X/DAY
     Route: 048
     Dates: start: 201105
  29. CALCII CARBONAS [Concomitant]
     Indication: OSTEOPOROSIS
     Dosage: 3000 MG, 3X/DAY
     Route: 048
     Dates: start: 20120917, end: 20121104
  30. CALCII CARBONAS [Concomitant]
     Dosage: 1000 MG, 3 IN 1 WK
     Route: 048
     Dates: start: 20130114, end: 20131114
  31. ALENDRONIC ACID [Concomitant]
     Active Substance: ALENDRONIC ACID
     Indication: OSTEOPOROSIS POSTMENOPAUSAL
     Dosage: UNK
  32. KALII CHLORIDI [Concomitant]
     Dosage: 391 MG, 2X/DAY
     Route: 048
     Dates: start: 20121105, end: 20130113
  33. FUROSEMID                          /00032601/ [Concomitant]
     Active Substance: FUROSEMIDE
     Dosage: 40 MG, 1X/DAY
     Route: 048
     Dates: start: 20140918
  34. ALFACALCIDOL [Concomitant]
     Active Substance: ALFACALCIDOL
     Indication: OSTEOPOROSIS
     Dosage: 0.5 MUG, 1X/DAY
     Route: 048
     Dates: start: 20120917
  35. ENOXAPARIN [Concomitant]
     Active Substance: ENOXAPARIN
     Dosage: 40 MG, 1X/DAY
     Route: 058
     Dates: start: 20130705, end: 20130929
  36. ALLOPURINOL. [Concomitant]
     Active Substance: ALLOPURINOL
     Dosage: 300 MG, 1X/DAY
     Route: 048
     Dates: start: 20130410, end: 20140917
  37. METHYLPREDNISOLON                  /00049601/ [Concomitant]
     Active Substance: METHYLPREDNISOLONE
     Dosage: 4 MG, 1X/DAY
     Route: 048
     Dates: start: 201206, end: 20121001
  38. ACETYLSALICYLIC ACID [Concomitant]
     Active Substance: ASPIRIN
     Dosage: 75 MG, 1 IN 1 WK
     Dates: start: 20130114
  39. BISOPROLOL [Concomitant]
     Active Substance: BISOPROLOL
     Dosage: 5 MG, 1X/DAY
     Route: 048
     Dates: start: 20130114
  40. CHOLECALCIFEROL [Concomitant]
     Active Substance: CHOLECALCIFEROL
     Indication: OSTEOPOROSIS POSTMENOPAUSAL
     Dosage: 800 IU, 2X/DAY
     Route: 048
     Dates: start: 201105, end: 20120917
  41. ALLOPURINOL. [Concomitant]
     Active Substance: ALLOPURINOL
     Dosage: 100 MG, 1X/DAY
     Route: 048
     Dates: start: 20141219
  42. IBANDRONIC ACID [Concomitant]
     Active Substance: IBANDRONIC ACID
     Indication: OSTEOPOROSIS
     Dosage: 150 MG, 1 IN 1 M
     Route: 048
     Dates: start: 20131115, end: 20140715
  43. EZETIMIBE. [Concomitant]
     Active Substance: EZETIMIBE
     Indication: HYPERCHOLESTEROLAEMIA
     Dosage: UNK
  44. AMOKSIKLAV                         /00852501/ [Concomitant]
     Indication: TONSILLITIS
     Dosage: 2000 MG, 2X/DAY
     Route: 048
     Dates: start: 20120103, end: 20120109
  45. CLOPIDOGREL [Concomitant]
     Active Substance: CLOPIDOGREL BISULFATE
     Indication: CAROTID ARTERY DISEASE
     Dosage: 75 MG, 1X/DAY
     Route: 048
     Dates: start: 20120427
  46. FUROSEMID                          /00032601/ [Concomitant]
     Active Substance: FUROSEMIDE
     Indication: RENAL FAILURE
     Dosage: 80 MG, 2X/DAY
     Route: 048
     Dates: start: 20120917, end: 20121024
  47. LACIDIPINE [Concomitant]
     Active Substance: LACIDIPINE
     Dosage: 4 MG, 1 IN 1 AS REQUIRED
     Route: 048
     Dates: start: 20130114, end: 20131113
  48. ALLOPURINOL. [Concomitant]
     Active Substance: ALLOPURINOL
     Dosage: 100 MG, 1X/DAY
     Route: 048
     Dates: start: 20121029, end: 20121104
  49. ALLOPURINOL. [Concomitant]
     Active Substance: ALLOPURINOL
     Dosage: 100 MG, 2X/DAY
     Route: 048
     Dates: start: 20121105, end: 20130113
  50. ALLOPURINOL. [Concomitant]
     Active Substance: ALLOPURINOL
     Dosage: 0.1 MG, 1X/DAY
     Route: 048
     Dates: start: 20130114, end: 20140409
  51. CIPROFLOXACIN. [Concomitant]
     Active Substance: CIPROFLOXACIN
     Indication: WOUND INFECTION
     Dosage: 500 MG, 2X/DAY
     Route: 048
     Dates: start: 20130914, end: 20130929
  52. AZITHROMYCIN [Concomitant]
     Active Substance: AZITHROMYCIN ANHYDROUS
     Indication: PNEUMONITIS
     Dosage: 500 MG, 1X/DAY
     Route: 048
     Dates: start: 20140704, end: 20140708
  53. LACIDOFIL [Concomitant]
     Dosage: 2000000000 UNITS, 2X/DAY
     Route: 048
     Dates: start: 20130914, end: 20130929
  54. METHOTREXATE [Concomitant]
     Active Substance: METHOTREXATE
     Indication: RHEUMATOID ARTHRITIS
     Dosage: 1 IN 1 WK)
     Route: 048
     Dates: start: 201107, end: 201203
  55. METHYLPREDNISOLON                  /00049601/ [Concomitant]
     Active Substance: METHYLPREDNISOLONE
     Dosage: 8 MG, 1X/DAY
     Route: 048
     Dates: start: 20130709, end: 20141215
  56. BISOPROLOL [Concomitant]
     Active Substance: BISOPROLOL
     Indication: HYPERTENSION
     Dosage: 2.5 MG, 1X/DAY
     Route: 048
     Dates: start: 2006, end: 20120109
  57. MELOXICAM. [Concomitant]
     Active Substance: MELOXICAM
     Indication: RHEUMATOID ARTHRITIS
     Dosage: 15 MG, 1X/DAY
     Route: 048
     Dates: start: 201105, end: 20120917
  58. AMOKSIKLAV                         /00852501/ [Concomitant]
     Indication: WOUND INFECTION
     Dosage: 2000 MG, 2X/DAY
     Route: 042
     Dates: start: 20130904, end: 20130910
  59. FUROSEMID                          /00032601/ [Concomitant]
     Active Substance: FUROSEMIDE
     Dosage: 40 MG, 1X/DAY
     Route: 048
     Dates: start: 20121024, end: 20130113
  60. ENOXAPARIN [Concomitant]
     Active Substance: ENOXAPARIN
     Indication: ATRIAL FIBRILLATION
     Dosage: 40 MG, 1 IN 1 TOTAL
     Route: 058
     Dates: start: 20120625, end: 20120625
  61. CLARITHROMYCIN. [Concomitant]
     Active Substance: CLARITHROMYCIN
     Indication: PNEUMONITIS
     Dosage: 1000 MG, 2X/DAY
     Route: 048
     Dates: start: 20140709, end: 20140715
  62. ALCLOMETASONE [Concomitant]
     Active Substance: ALCLOMETASONE
     Indication: DERMATITIS ALLERGIC
     Dosage: 0.5 MG, 1X/DAY
     Route: 062
     Dates: start: 20121121, end: 20121129
  63. METHYLPREDNISOLON                  /00049601/ [Concomitant]
     Active Substance: METHYLPREDNISOLONE
     Dosage: 8 MG, 1X/DAY
     Route: 048
     Dates: start: 20121001, end: 20121025
  64. ALENDRONIC ACID [Concomitant]
     Active Substance: ALENDRONIC ACID
     Indication: OSTEOPOROSIS
     Dosage: 70 MG, 1X/DAY
     Route: 048
     Dates: start: 2008, end: 20120917
  65. NITRENDIPIN [Concomitant]
     Active Substance: NITRENDIPINE
     Indication: HYPERTENSION
     Dosage: 10 MG, 1 IN 1 AS REQUIRED
     Route: 048
     Dates: start: 20120917
  66. METHYLPREDNISOLON                  /00049601/ [Concomitant]
     Active Substance: METHYLPREDNISOLONE
     Indication: RHEUMATOID ARTHRITIS
     Dosage: 4 MG, 1X/DAY
     Route: 048
     Dates: start: 20110715, end: 20120525
  67. FOLIC ACID. [Concomitant]
     Active Substance: FOLIC ACID
     Indication: PROPHYLAXIS
     Dosage: 15 MG, 1 IN 1 WK
     Route: 048
     Dates: start: 201107, end: 20120917
  68. RAMIPRIL. [Concomitant]
     Active Substance: RAMIPRIL
     Indication: HYPERTENSION
     Dosage: 5 MG, 2X/DAY
     Route: 048
     Dates: start: 20120710, end: 20120917

REACTIONS (2)
  - Osteonecrosis of jaw [Recovering/Resolving]
  - Osteonecrosis [Recovering/Resolving]

NARRATIVE: CASE EVENT DATE: 20150518
